FAERS Safety Report 6380223-5 (Version None)
Quarter: 2009Q3

REPORT INFORMATION
  Report Type: 
  Country: None (occurrence: None)
  Receive Date: 20090929
  Receipt Date: 20090831
  Transmission Date: 20100115
  Serious: Yes (Life-Threatening)
  Sender: FDA-Public Use
  Company Number: NZ-ASTRAZENECA-2009SE14441

PATIENT
  Age: 16395 Day
  Sex: Female

DRUGS (2)
  1. LIGNOCAINE [Suspect]
     Indication: PARAESTHESIA
     Dosage: ONCE/SINGLE ADMINISTRATION
     Route: 058
     Dates: start: 20021120, end: 20021120
  2. DICLOFENAC [Concomitant]
     Indication: JOINT SPRAIN
     Route: 048
     Dates: start: 20021113

REACTIONS (2)
  - ANAPHYLACTIC SHOCK [None]
  - INJECTION SITE REACTION [None]
